FAERS Safety Report 4387464-7 (Version None)
Quarter: 2004Q2

REPORT INFORMATION
  Report Type: 
  Country: None (occurrence: None)
  Receive Date: 20040630
  Receipt Date: 20040331
  Transmission Date: 20050107
  Serious: No
  Sender: FDA-Public Use
  Company Number: US-BRISTOL-MYERS SQUIBB COMPANY-12551016

PATIENT
  Sex: Male

DRUGS (1)
  1. REYATAZ [Suspect]
     Indication: HIV TEST POSITIVE
     Route: 048

REACTIONS (1)
  - JAUNDICE [None]
